FAERS Safety Report 9499675 (Version 8)
Quarter: 2014Q3

REPORT INFORMATION
  Report Type: Spontaneous
  Country: US (occurrence: US)
  Receive Date: 20130905
  Receipt Date: 20140709
  Transmission Date: 20150326
  Serious: No
  Sender: FDA-Public Use
  Company Number: US-009507513-1308USA013865

PATIENT
  Age: 43 Year
  Sex: Female
  Weight: 74.83 kg

DRUGS (6)
  1. RIBASPHERE [Suspect]
     Active Substance: RIBAVIRIN
     Indication: CHRONIC HEPATITIS C
     Dosage: 1200 MG, PER DAY IN DIVIDED DOSES
     Route: 048
     Dates: start: 20130621, end: 20140523
  2. SERTRALINE HYDROCHLORIDE. [Concomitant]
     Active Substance: SERTRALINE HYDROCHLORIDE
     Dosage: UNK
  3. ZOFRAN [Concomitant]
     Active Substance: ONDANSETRON HYDROCHLORIDE
     Indication: NAUSEA
  4. PEGASYS [Suspect]
     Active Substance: PEGINTERFERON ALFA-2A
     Indication: CHRONIC HEPATITIS C
     Dosage: 180 MICROGRAM, QW, PROCLICK
     Route: 058
     Dates: start: 20130621, end: 20140523
  5. ZOFRAN [Concomitant]
     Active Substance: ONDANSETRON HYDROCHLORIDE
     Indication: VOMITING
  6. VICTRELIS [Suspect]
     Active Substance: BOCEPREVIR
     Indication: CHRONIC HEPATITIS C
     Dosage: UNK
     Dates: start: 20130725, end: 20140523

REACTIONS (40)
  - Nasal dryness [Unknown]
  - Sinus headache [Unknown]
  - Headache [Recovered/Resolved]
  - Fatigue [Unknown]
  - Vitamin B12 decreased [Unknown]
  - Rash [Unknown]
  - Irritability [Recovered/Resolved]
  - Hepatic pain [Unknown]
  - Tooth infection [Unknown]
  - Influenza like illness [Unknown]
  - Alopecia [Unknown]
  - Sleep disorder [Unknown]
  - Vomiting [Recovered/Resolved]
  - Asthenia [Unknown]
  - Injection site bruising [Unknown]
  - Injection site rash [Recovered/Resolved]
  - Glossodynia [Unknown]
  - Platelet count decreased [Unknown]
  - Pyrexia [Unknown]
  - Cough [Unknown]
  - Dry mouth [Unknown]
  - Dysgeusia [Unknown]
  - Upper respiratory tract infection [Unknown]
  - Immunosuppression [Unknown]
  - Anaemia [Unknown]
  - Anxiety [Unknown]
  - Nausea [Recovered/Resolved]
  - Haemoglobin decreased [Unknown]
  - Decreased appetite [Unknown]
  - Oesophageal spasm [Unknown]
  - Abdominal discomfort [Unknown]
  - Sinus congestion [Unknown]
  - Pain [Unknown]
  - Renal cyst [Unknown]
  - Gait disturbance [Unknown]
  - Eye haemorrhage [Unknown]
  - Pruritus [Recovered/Resolved]
  - Respiratory tract congestion [Unknown]
  - Diarrhoea [Unknown]
  - Red blood cell count decreased [Unknown]

NARRATIVE: CASE EVENT DATE: 20130703
